FAERS Safety Report 6310912-X (Version None)
Quarter: 2009Q3

REPORT INFORMATION
  Report Type: 
  Country: None (occurrence: None)
  Receive Date: 20090812
  Receipt Date: 20090803
  Transmission Date: 20100115
  Serious: Yes (Death)
  Sender: FDA-Public Use
  Company Number: 345927

PATIENT
  Age: 69 Year
  Sex: Female
  Weight: 62 kg

DRUGS (6)
  1. ACYCLOVIR [Suspect]
     Indication: ENCEPHALITIS HERPES
     Dosage: 600 MG, 3 DAY, INTRAVENOUS
     Route: 042
  2. DIGOXIN [Concomitant]
  3. (ACENOCOUMAROL) [Concomitant]
  4. PHENYTOIN [Concomitant]
  5. VALPROIC ACID [Concomitant]
  6. (ANTIBIOTICS) [Concomitant]

REACTIONS (17)
  - ATRIAL FIBRILLATION [None]
  - COMA [None]
  - CONTINUOUS HAEMODIAFILTRATION [None]
  - DRUG LEVEL INCREASED [None]
  - ELECTROENCEPHALOGRAM ABNORMAL [None]
  - ENCEPHALITIS VIRAL [None]
  - EPSTEIN-BARR VIRUS INFECTION [None]
  - HAEMODIALYSIS [None]
  - HYPOTENSION [None]
  - INTESTINAL ISCHAEMIA [None]
  - LARGE INTESTINE PERFORATION [None]
  - NEUROTOXICITY [None]
  - RECTAL HAEMORRHAGE [None]
  - RENAL FAILURE ACUTE [None]
  - RESPIRATORY FAILURE [None]
  - SEPSIS [None]
  - WOUND HAEMORRHAGE [None]
